FAERS Safety Report 14276144 (Version 2)
Quarter: 2018Q3

REPORT INFORMATION
  Report Type: Spontaneous
  Country: US (occurrence: US)
  Receive Date: 20171212
  Receipt Date: 20180723
  Transmission Date: 20181010
  Serious: Yes (Hospitalization)
  Sender: FDA-Public Use
  Company Number: US-CELGENEUS-USA-20171201667

PATIENT
  Age: 80 Year

DRUGS (1)
  1. REVLIMID [Suspect]
     Active Substance: LENALIDOMIDE
     Indication: MYELODYSPLASTIC SYNDROME
     Route: 048
     Dates: start: 2014

REACTIONS (4)
  - Renal failure [Unknown]
  - Rash [Unknown]
  - Erythema [Unknown]
  - Oedema [Unknown]

NARRATIVE: CASE EVENT DATE: 201710
